FAERS Safety Report 15518134 (Version 3)
Quarter: 2018Q4

REPORT INFORMATION
  Report Type: Spontaneous
  Country: EG (occurrence: EG)
  Receive Date: 20181017
  Receipt Date: 20181210
  Transmission Date: 20190205
  Serious: Yes (Hospitalization, Disabling, Other)
  Sender: FDA-Public Use
  Company Number: EG-NOVOPROD-626512

PATIENT
  Age: 68 Year
  Sex: Male

DRUGS (6)
  1. MIXTARD 30 HM PENFILL [Suspect]
     Active Substance: INSULIN HUMAN
     Indication: DIABETES MELLITUS
     Dosage: 15 U, BID
     Route: 058
  2. TWINZOL [Concomitant]
     Indication: EYE DISORDER
     Dosage: EYE DROP/12 HRS
     Route: 031
  3. MIXTARD 30 HM PENFILL [Suspect]
     Active Substance: INSULIN HUMAN
     Dosage: 7-8U/MORNING + 12 U/AFTERNOON
     Route: 058
  4. CONCOR [Concomitant]
     Active Substance: BISOPROLOL FUMARATE
     Indication: HYPERTENSION
     Dosage: 1 TAB, QD (STARTED 18 YEARS AGO)
     Route: 048
  5. TRENTAL [Concomitant]
     Active Substance: PENTOXIFYLLINE
     Dosage: 1 TAB, QD (STARTED 3 MONTHS AGO)
     Route: 048
  6. OCTATRON [Concomitant]
     Indication: SUPPLEMENTATION THERAPY
     Dosage: 1 CAPS, QD (2 MONTHS AGO)
     Route: 048

REACTIONS (10)
  - Glaucoma [Unknown]
  - Blood glucose increased [Not Recovered/Not Resolved]
  - Wrong technique in device usage process [Unknown]
  - Visual impairment [Not Recovered/Not Resolved]
  - Retinal haemorrhage [Not Recovered/Not Resolved]
  - Device breakage [Unknown]
  - Product storage error [Unknown]
  - Device failure [Unknown]
  - Device malfunction [Unknown]
  - Cataract [Unknown]
